FAERS Safety Report 21382680 (Version 5)
Quarter: 2025Q2

REPORT INFORMATION
  Report Type: Report from Study
  Country: JP (occurrence: JP)
  Receive Date: 20220927
  Receipt Date: 20250524
  Transmission Date: 20250716
  Serious: Yes (Death, Other)
  Sender: ROCHE
  Company Number: JP-CHUGAI-2022011173

PATIENT
  Age: 85 Year
  Sex: Male

DRUGS (6)
  1. TECENTRIQ [Suspect]
     Active Substance: ATEZOLIZUMAB
     Indication: Hepatocellular carcinoma
     Route: 042
     Dates: start: 20220221, end: 20220221
  2. TECENTRIQ [Suspect]
     Active Substance: ATEZOLIZUMAB
     Route: 042
     Dates: start: 20230529
  3. TECENTRIQ [Suspect]
     Active Substance: ATEZOLIZUMAB
     Route: 042
     Dates: start: 20240115
  4. AVASTIN [Suspect]
     Active Substance: BEVACIZUMAB
     Indication: Hepatocellular carcinoma
     Route: 042
     Dates: start: 20220221
  5. BEVACIZUMAB [Suspect]
     Active Substance: BEVACIZUMAB
     Indication: Hepatocellular carcinoma
     Route: 065
     Dates: start: 20220221, end: 20220221
  6. BEVACIZUMAB [Suspect]
     Active Substance: BEVACIZUMAB
     Route: 065
     Dates: start: 20230529

REACTIONS (11)
  - Ascites [Not Recovered/Not Resolved]
  - Proteinuria [Unknown]
  - Pyrexia [Unknown]
  - Hypoalbuminaemia [Recovered/Resolved]
  - Decreased appetite [Recovered/Resolved]
  - Hypertension [Unknown]
  - Tinnitus [Recovered/Resolved]
  - Anaemia [Not Recovered/Not Resolved]
  - Dysphonia [Recovered/Resolved]
  - Hepatocellular carcinoma [Fatal]
  - Pneumonia [Not Recovered/Not Resolved]

NARRATIVE: CASE EVENT DATE: 20220314
